FAERS Safety Report 5600527-0 (Version None)
Quarter: 2008Q1

REPORT INFORMATION
  Report Type: 
  Country: None (occurrence: None)
  Receive Date: 20080123
  Receipt Date: 20080118
  Transmission Date: 20080703
  Serious: Yes (Hospitalization, Other)
  Sender: FDA-Public Use
  Company Number: US-ROXANE LABORATORIES, INC-2008-DE-00361GD

PATIENT
  Age: 51 Year
  Sex: Male

DRUGS (7)
  1. SERTRALINE [Suspect]
     Indication: BIPOLAR DISORDER
  2. SERTRALINE [Suspect]
  3. SERTRALINE [Suspect]
  4. PEGYLATED INTERFERON-ALPHA [Suspect]
     Indication: HEPATITIS C
     Dates: start: 20020601
  5. RIBAVIRIN [Suspect]
     Indication: HEPATITIS C
     Dates: start: 20020601
  6. LITHIUM CARBONATE [Concomitant]
     Indication: BIPOLAR DISORDER
  7. LEVOTHYROXINE SODIUM [Concomitant]
     Indication: BIPOLAR DISORDER

REACTIONS (6)
  - AFFECTIVE DISORDER [None]
  - DEPRESSIVE SYMPTOM [None]
  - DRUG INEFFECTIVE [None]
  - HYPOMANIA [None]
  - PSYCHOMOTOR RETARDATION [None]
  - SUICIDAL IDEATION [None]
